FAERS Safety Report 9230248 (Version 1)
Quarter: 2013Q2

REPORT INFORMATION
  Report Type: Spontaneous
  Country: US (occurrence: US)
  Receive Date: 20130415
  Receipt Date: 20130415
  Transmission Date: 20140414
  Serious: Yes (Death)
  Sender: FDA-Public Use
  Company Number: US-ASTELLAS-2013US003936

PATIENT
  Age: 47 Year
  Sex: Male

DRUGS (1)
  1. MYCAMINE [Suspect]
     Indication: SEPTIC SHOCK
     Dosage: 100 MG, UNKNOWN/D
     Route: 042

REACTIONS (2)
  - Off label use [Unknown]
  - Death [Fatal]
